FAERS Safety Report 22185751 (Version 1)
Quarter: 2023Q2

REPORT INFORMATION
  Report Type: Spontaneous
  Country: CN (occurrence: None)
  Receive Date: 20230407
  Receipt Date: 20230407
  Transmission Date: 20230722
  Serious: Yes (Life-Threatening, Hospitalization)
  Sender: FDA-Public Use
  Company Number: 2023A079892

PATIENT
  Age: 15429 Day
  Sex: Female
  Weight: 65 kg

DRUGS (2)
  1. METFORMIN HYDROCHLORIDE\SAXAGLIPTIN [Suspect]
     Active Substance: METFORMIN HYDROCHLORIDE\SAXAGLIPTIN
     Indication: Diabetes mellitus
     Dosage: 1.00 TABLET, ONCE EVERY ONE DAY
     Route: 048
     Dates: start: 20220522, end: 20220525
  2. CANAGLIFLOZIN [Suspect]
     Active Substance: CANAGLIFLOZIN
     Indication: Diabetes mellitus
     Dosage: 1.00 TABLET, ONCE EVERY ONE DAY
     Route: 048
     Dates: start: 20220522, end: 20220525

REACTIONS (4)
  - Diabetic ketoacidosis [Recovering/Resolving]
  - Gastritis [Recovering/Resolving]
  - Electrolyte imbalance [Recovering/Resolving]
  - Dermatitis allergic [Recovering/Resolving]

NARRATIVE: CASE EVENT DATE: 20220526
